FAERS Safety Report 18658091 (Version 2)
Quarter: 2021Q1

REPORT INFORMATION
  Report Type: Spontaneous
  Country: JP (occurrence: JP)
  Receive Date: 20201223
  Receipt Date: 20210222
  Transmission Date: 20210419
  Serious: Yes (Hospitalization, Other)
  Sender: FDA-Public Use
  Company Number: JP-BRACCO-2020JP05278

PATIENT
  Age: 50 Year
  Sex: Female

DRUGS (1)
  1. PROHANCE [Suspect]
     Active Substance: GADOTERIDOL
     Indication: DIAGNOSTIC PROCEDURE
     Dosage: 13 ML, SINGLE
     Route: 042
     Dates: start: 20201217, end: 20201217

REACTIONS (4)
  - Presyncope [Recovered/Resolved]
  - Vomiting [Recovered/Resolved]
  - Cardiac arrest [Recovering/Resolving]
  - Shock [Recovered/Resolved]

NARRATIVE: CASE EVENT DATE: 20201217
